FAERS Safety Report 6169502-4 (Version None)
Quarter: 2009Q2

REPORT INFORMATION
  Report Type: 
  Country: None (occurrence: None)
  Receive Date: 20090428
  Receipt Date: 20090422
  Transmission Date: 20091009
  Serious: Yes (Death)
  Sender: FDA-Public Use
  Company Number: JP-JNJFOC-20090303180

PATIENT
  Sex: Female

DRUGS (8)
  1. DUROTEP MT PATCH [Suspect]
     Route: 062
  2. DUROTEP MT PATCH [Suspect]
     Indication: CANCER PAIN
     Route: 062
  3. OPSO [Concomitant]
     Indication: CANCER PAIN
     Route: 048
  4. FURTULON [Concomitant]
     Indication: CERVIX CARCINOMA
     Route: 048
  5. FURTULON [Concomitant]
     Indication: CANCER PAIN
     Route: 048
  6. LENDORMIN [Concomitant]
     Indication: INSOMNIA
     Route: 048
  7. SUCRALFATE [Concomitant]
     Indication: ABDOMINAL PAIN UPPER
     Route: 048
  8. OMEPRAL [Concomitant]
     Indication: ABDOMINAL PAIN UPPER
     Route: 048

REACTIONS (1)
  - CERVIX CANCER METASTATIC [None]
